FAERS Safety Report 8845984 (Version 1)
Quarter: 2012Q4

REPORT INFORMATION
  Report Type: 
  Country: US (occurrence: US)
  Receive Date: 20121017
  Receipt Date: 20121017
  Transmission Date: 20130627
  Serious: Yes (Death)
  Sender: FDA-Public Use
  Company Number: US-ROCHE-1127628

PATIENT
  Sex: Female

DRUGS (9)
  1. AVASTIN [Suspect]
     Indication: OESOPHAGEAL CARCINOMA
     Route: 065
  2. AVASTIN [Suspect]
     Indication: LUNG NEOPLASM MALIGNANT
  3. XELODA [Suspect]
     Indication: OESOPHAGEAL CARCINOMA
     Route: 065
  4. XELODA [Suspect]
     Indication: LUNG NEOPLASM MALIGNANT
  5. CARBOPLATIN [Concomitant]
  6. TAXOL [Concomitant]
  7. EPIRUBICIN [Concomitant]
  8. CISPLATIN [Concomitant]
  9. TAXOTERE [Concomitant]

REACTIONS (2)
  - Death [Fatal]
  - Disease progression [Unknown]
